FAERS Safety Report 18695194 (Version 1)
Quarter: 2021Q1

REPORT INFORMATION
  Report Type: Spontaneous
  Country: DE (occurrence: DE)
  Receive Date: 20210104
  Receipt Date: 20210104
  Transmission Date: 20210419
  Serious: Yes (Other)
  Sender: FDA-Public Use
  Company Number: DE-PFIZER INC-2020519502

PATIENT
  Age: 32 Year
  Sex: Female
  Weight: 70 kg

DRUGS (1)
  1. CYTOTEC [Suspect]
     Active Substance: MISOPROSTOL
     Indication: LABOUR INDUCTION
     Dosage: RECEIVED 4 WHOLE TABLETS IN ONE DAY WITH 4 HRS INTERVALL: I.E. AT 10, 14, 18 AND 22 O^CLOCK
     Route: 048
     Dates: start: 20150827, end: 20150829

REACTIONS (13)
  - Circulatory collapse [Unknown]
  - Vomiting [Unknown]
  - HELLP syndrome [Recovered/Resolved with Sequelae]
  - Sleep disorder [Unknown]
  - Hypertension [Unknown]
  - Pain [Unknown]
  - Uterine tachysystole [Recovered/Resolved]
  - Poor feeding infant [Unknown]
  - Hepatic failure [Unknown]
  - Haemorrhage [Unknown]
  - Renal failure [Unknown]
  - Presyncope [Unknown]
  - Off label use [Unknown]

NARRATIVE: CASE EVENT DATE: 20150831
